FAERS Safety Report 4422524-3 (Version None)
Quarter: 2004Q3

REPORT INFORMATION
  Report Type: 
  Country: None (occurrence: None)
  Receive Date: 20040806
  Receipt Date: 20040726
  Transmission Date: 20050211
  Serious: Yes (Life-Threatening, Hospitalization)
  Sender: FDA-Public Use
  Company Number: 2004005719

PATIENT
  Age: 49 Year
  Sex: Male

DRUGS (12)
  1. VFEND (VORIOCONAZOLE) [Suspect]
     Indication: ILL-DEFINED DISORDER
     Dosage: 400 MG (2 IN 1 D), ORAL
     Route: 048
  2. METHADONE HCL [Suspect]
     Indication: DRUG DEPENDENCE
     Dosage: 90 MG (1 IN 1 D), ORAL
     Route: 048
  3. PHENYTOIN [Concomitant]
  4. GABAPENTIN [Concomitant]
  5. QUETIAPINE (QUETIAPINE) [Concomitant]
  6. FLUOXETINE [Concomitant]
  7. AMITRIPTYLINE HCL [Concomitant]
  8. GLYBURIDE [Concomitant]
  9. ISOPHANE INSULIN [Concomitant]
  10. PANTOPRAZOLE (PANTOPRAZOLE) [Concomitant]
  11. METOPROLOL TARTRATE [Concomitant]
  12. ATORVASTATIN (ATORVASTATIN) [Concomitant]

REACTIONS (5)
  - DRUG INTERACTION [None]
  - MIOSIS [None]
  - SKIN LACERATION [None]
  - SOMNOLENCE [None]
  - SYNCOPE [None]
